FAERS Safety Report 6248090-8 (Version None)
Quarter: 2009Q2

REPORT INFORMATION
  Report Type: 
  Country: None (occurrence: None)
  Receive Date: 20090629
  Receipt Date: 20070702
  Transmission Date: 20091009
  Serious: Yes (Other)
  Sender: FDA-Public Use
  Company Number: US-ASTRAZENECA-2006UW23956

PATIENT
  Age: 22426 Day
  Sex: Female
  Weight: 83.5 kg

DRUGS (26)
  1. SEROQUEL [Suspect]
     Indication: BIPOLAR DISORDER
     Route: 048
     Dates: start: 20050608, end: 20050829
  2. SEROQUEL [Suspect]
     Indication: DEPRESSION
     Route: 048
     Dates: start: 20050608, end: 20050829
  3. SEROQUEL [Suspect]
     Route: 048
     Dates: start: 20050720, end: 20050829
  4. SEROQUEL [Suspect]
     Route: 048
     Dates: start: 20050720, end: 20050829
  5. SEROQUEL [Suspect]
     Route: 048
     Dates: start: 20050801
  6. SEROQUEL [Suspect]
     Route: 048
     Dates: start: 20050801
  7. ZYPREXA [Concomitant]
  8. ZYPREXA [Concomitant]
     Dosage: 2.5MG - 10 MG
     Dates: start: 20011016
  9. ZOLOFT [Concomitant]
  10. ZOLOFT [Concomitant]
     Dosage: 50MG - 100MG
     Dates: start: 20011017
  11. PRILOSEC [Concomitant]
     Indication: GASTROOESOPHAGEAL REFLUX DISEASE
     Dates: start: 19950324
  12. SYNTHROID [Concomitant]
     Dates: start: 20080319
  13. SINGULAIR [Concomitant]
     Dates: start: 20040707
  14. CELEBREX [Concomitant]
     Indication: ARTHRITIS
     Dates: start: 20040812
  15. AVANDIA [Concomitant]
     Dosage: 2MG-8MG
     Dates: start: 20011217
  16. ESTRADIOL [Concomitant]
     Dates: start: 20010302
  17. LIPITOR [Concomitant]
     Dosage: 10 MG - 40 MG
     Dates: start: 20010302
  18. AMBIEN [Concomitant]
     Dates: start: 20011017
  19. ZETIA [Concomitant]
     Dates: start: 20040719
  20. DITROPAN XL [Concomitant]
     Dates: start: 20040831
  21. ALLEGRA [Concomitant]
     Dosage: 50MG - 180MG
     Dates: start: 20020418
  22. PREVACID [Concomitant]
     Dates: start: 20010316
  23. FUROSEMIDE INTENSOL [Concomitant]
     Dates: start: 20010905
  24. ROZEREM [Concomitant]
     Dates: start: 20061205
  25. CYCLOBENZAPRINE [Concomitant]
     Dates: start: 20070427
  26. LUNESTA [Concomitant]
     Dates: start: 20050728

REACTIONS (3)
  - DIABETES MELLITUS [None]
  - DIABETIC NEUROPATHY [None]
  - TYPE 2 DIABETES MELLITUS [None]
